FAERS Safety Report 4275406-4 (Version None)
Quarter: 2004Q1

REPORT INFORMATION
  Report Type: 
  Country: None (occurrence: None)
  Receive Date: 20040116
  Receipt Date: 20040112
  Transmission Date: 20041129
  Serious: Yes (Hospitalization)
  Sender: FDA-Public Use
  Company Number: 200400493

PATIENT
  Age: 14 Year
  Sex: Female

DRUGS (1)
  1. MOTRIN [Suspect]
     Indication: HEADACHE
     Dosage: 150 MG ONCE PO
     Route: 048
     Dates: start: 20040111, end: 20040111

REACTIONS (3)
  - CONVULSION [None]
  - LOSS OF CONSCIOUSNESS [None]
  - THROAT IRRITATION [None]
